FAERS Safety Report 8886865 (Version 1)
Quarter: 2012Q4

REPORT INFORMATION
  Report Type: 
  Country: US (occurrence: US)
  Receive Date: 20121105
  Receipt Date: 20121105
  Transmission Date: 20130627
  Serious: Yes (Other)
  Sender: FDA-Public Use
  Company Number: US-ELI_LILLY_AND_COMPANY-US201210009855

PATIENT
  Age: 55 Year
  Sex: Female

DRUGS (2)
  1. ADCIRCA [Suspect]
     Dosage: UNK
     Route: 065
  2. LETAIRIS [Concomitant]
     Indication: PULMONARY HYPERTENSION
     Dosage: 10 mg, qd
     Route: 048
     Dates: start: 20110714, end: 20120921

REACTIONS (3)
  - Rectal haemorrhage [Not Recovered/Not Resolved]
  - Myalgia [Unknown]
  - Hyperhidrosis [Unknown]
